FAERS Safety Report 7531226-6 (Version None)
Quarter: 2011Q2

REPORT INFORMATION
  Report Type: 
  Country: None (occurrence: None)
  Receive Date: 20110608
  Receipt Date: 20110525
  Transmission Date: 20111010
  Serious: Yes (Death, Other)
  Sender: FDA-Public Use
  Company Number: AU-CELGENEUS-008-21880-11021988

PATIENT
  Sex: Male

DRUGS (4)
  1. REVLIMID [Suspect]
     Indication: MULTIPLE MYELOMA
     Dosage: 25 MILLIGRAM
     Route: 048
     Dates: start: 20101109, end: 20101113
  2. DEXAMETHASONE [Concomitant]
     Indication: MULTIPLE MYELOMA
     Dosage: 20 MILLIGRAM
     Route: 065
  3. REVLIMID [Suspect]
     Route: 048
     Dates: start: 20101217, end: 20101229
  4. TRIMETHOPRIM [Concomitant]
     Dosage: 300 MILLIGRAM
     Route: 065
     Dates: start: 20101109, end: 20101113

REACTIONS (2)
  - MULTIPLE MYELOMA [None]
  - DRUG ERUPTION [None]
